FAERS Safety Report 6939534-4 (Version None)
Quarter: 2010Q3

REPORT INFORMATION
  Report Type: 
  Country: None (occurrence: None)
  Receive Date: 20100819
  Receipt Date: 20100806
  Transmission Date: 20110219
  Serious: Yes (Hospitalization)
  Sender: FDA-Public Use
  Company Number: 2010099584

PATIENT
  Sex: Male

DRUGS (2)
  1. DALTEPARIN SODIUM [Suspect]
     Indication: LUNG NEOPLASM MALIGNANT
     Dates: start: 20100428
  2. TARCEVA [Concomitant]

REACTIONS (3)
  - BLOOD UREA INCREASED [None]
  - CLOSTRIDIUM DIFFICILE COLITIS [None]
  - GLOMERULAR FILTRATION RATE DECREASED [None]
